FAERS Safety Report 4371800-1 (Version None)
Quarter: 2004Q2

REPORT INFORMATION
  Report Type: 
  Country: None (occurrence: None)
  Receive Date: 20040604
  Receipt Date: 20040604
  Transmission Date: 20050107
  Serious: Yes (Hospitalization)
  Sender: FDA-Public Use
  Company Number: None

PATIENT
  Sex: Female
  Weight: 93.9 kg

DRUGS (5)
  1. HYDROXYUREA [Suspect]
     Indication: TONSIL CANCER
     Dosage: 500 MG
     Dates: start: 20040209, end: 20040404
  2. IRESSA [Suspect]
     Indication: TONSIL CANCER
     Dosage: 250 MG BID Q DAY ORAL
     Route: 048
     Dates: start: 20040209, end: 20040404
  3. FLUOROURACIL [Suspect]
     Indication: TONSIL CANCER
     Dosage: QD DAY IV
     Route: 042
     Dates: start: 20040209, end: 20040401
  4. ZOFRAN [Concomitant]
  5. ATIVAN [Concomitant]

REACTIONS (5)
  - FEEDING TUBE COMPLICATION [None]
  - MUCOSAL INFLAMMATION [None]
  - NAUSEA [None]
  - RETCHING [None]
  - VOMITING [None]
